FAERS Safety Report 5934474-1 (Version None)
Quarter: 2008Q4

REPORT INFORMATION
  Report Type: 
  Country: None (occurrence: None)
  Receive Date: 20081029
  Receipt Date: 20081021
  Transmission Date: 20090506
  Serious: No
  Sender: FDA-Public Use
  Company Number: JP-PFIZER INC-2008053543

PATIENT
  Sex: Female
  Weight: 55 kg

DRUGS (9)
  1. AZULFIDINE [Suspect]
     Indication: RHEUMATOID ARTHRITIS
     Route: 048
     Dates: start: 20080602, end: 20080623
  2. LOXONIN [Suspect]
     Indication: RHEUMATOID ARTHRITIS
     Route: 048
     Dates: start: 20080223
  3. RHEUMATREX [Suspect]
     Indication: RHEUMATOID ARTHRITIS
     Route: 048
     Dates: start: 20080119
  4. PREDONINE [Concomitant]
     Route: 048
     Dates: start: 20060701
  5. ALFAROL [Concomitant]
  6. ASPARA-CA [Concomitant]
  7. GLORIAMIN [Concomitant]
     Route: 048
     Dates: start: 20080223
  8. ALENDRONATE SODIUM [Concomitant]
     Route: 048
     Dates: start: 20050808
  9. SELTOUCH [Concomitant]

REACTIONS (2)
  - OVERDOSE [None]
  - STOMATITIS [None]
